FAERS Safety Report 4690648-1 (Version None)
Quarter: 2005Q2

REPORT INFORMATION
  Report Type: 
  Country: None (occurrence: None)
  Receive Date: 20050615
  Receipt Date: 20050517
  Transmission Date: 20051028
  Serious: Yes (Death, Life-Threatening, Hospitalization, Disabling, Other)
  Sender: FDA-Public Use
  Company Number: NZ-GLAXOSMITHKLINE-B0381265A

PATIENT
  Age: 79 Year
  Sex: Male
  Weight: 79 kg

DRUGS (6)
  1. AVANDIA [Suspect]
     Dosage: 4MG PER DAY
     Route: 048
     Dates: start: 20031103
  2. METFORMIN [Concomitant]
     Dosage: 1G TWICE PER DAY
     Route: 048
  3. GLIPIZIDE [Concomitant]
     Dosage: 10MG TWICE PER DAY
     Route: 048
  4. METOPROLOL [Concomitant]
     Indication: HYPERTENSION
     Dosage: 95MG PER DAY
     Route: 048
  5. INHIBACE PLUS [Concomitant]
     Indication: HYPERTENSION
     Dosage: 1U PER DAY
     Route: 048
  6. SIMVASTATIN [Concomitant]
     Indication: BLOOD CHOLESTEROL INCREASED
     Dosage: 1U PER DAY
     Route: 048

REACTIONS (1)
  - METASTATIC NEOPLASM [None]
